FAERS Safety Report 11752383 (Version 2)
Quarter: 2015Q4

REPORT INFORMATION
  Report Type: Spontaneous
  Country: US (occurrence: US)
  Receive Date: 20151118
  Receipt Date: 20151229
  Transmission Date: 20160304
  Serious: Yes (Hospitalization, Other)
  Sender: FDA-Public Use
  Company Number: US-ELI_LILLY_AND_COMPANY-US201511002980

PATIENT
  Age: 61 Year
  Sex: Male
  Weight: 131.52 kg

DRUGS (2)
  1. ASPIRIN                            /00002701/ [Concomitant]
     Active Substance: ASPIRIN
     Indication: PRODUCT USED FOR UNKNOWN INDICATION
     Dosage: UNK, UNKNOWN
     Route: 065
  2. AXIRON [Suspect]
     Active Substance: TESTOSTERONE
     Indication: ANDROGEN REPLACEMENT THERAPY
     Dosage: UNK, UNKNOWN
     Route: 065
     Dates: start: 20130602, end: 20140602

REACTIONS (8)
  - Pneumonitis [Unknown]
  - Pulmonary hypertension [Unknown]
  - Pneumonia [Unknown]
  - Angina pectoris [Unknown]
  - Pulmonary oedema [Unknown]
  - Deep vein thrombosis [Not Recovered/Not Resolved]
  - Myocardial infarction [Unknown]
  - Pulmonary embolism [Not Recovered/Not Resolved]

NARRATIVE: CASE EVENT DATE: 20140901
